FAERS Safety Report 21233293 (Version 1)
Quarter: 2022Q3

REPORT INFORMATION
  Report Type: Spontaneous
  Country: US (occurrence: US)
  Receive Date: 20220819
  Receipt Date: 20220819
  Transmission Date: 20221026
  Serious: No
  Sender: FDA-Public Use
  Company Number: US-TAKEDA-2022TUS056220

PATIENT
  Weight: 136 kg

DRUGS (9)
  1. NATPARA (PARATHYROID HORMONE) [Suspect]
     Active Substance: PARATHYROID HORMONE
     Indication: Hypoparathyroidism
     Dosage: 75 MICROGRAM, QD
     Route: 065
     Dates: end: 201909
  2. NATPARA (PARATHYROID HORMONE) [Suspect]
     Active Substance: PARATHYROID HORMONE
     Indication: Hypoparathyroidism
     Dosage: 75 MICROGRAM, QD
     Route: 065
     Dates: end: 201909
  3. NATPARA (PARATHYROID HORMONE) [Suspect]
     Active Substance: PARATHYROID HORMONE
     Indication: Hypoparathyroidism
     Dosage: 75 MICROGRAM, QD
     Route: 065
     Dates: end: 201909
  4. SINGULAIR [Concomitant]
     Active Substance: MONTELUKAST SODIUM
     Indication: Multiple allergies
     Route: 065
  5. CALCIUM CARBONATE\ERGOCALCIFEROL\RETINOL [Concomitant]
     Active Substance: CALCIUM CARBONATE\ERGOCALCIFEROL\RETINOL
     Indication: Hypoparathyroidism
     Route: 065
  6. TUMS [Concomitant]
     Active Substance: CALCIUM CARBONATE
     Indication: Hypoparathyroidism
     Dosage: 3000 MILLIGRAM, TID
     Route: 048
  7. VITAMIN D NOS [Concomitant]
     Active Substance: VITAMIN D NOS
     Indication: Hypoparathyroidism
     Dosage: 2000 INTERNATIONAL UNIT, 1/WEEK
     Route: 048
  8. VITAMIN D NOS [Concomitant]
     Active Substance: VITAMIN D NOS
     Dosage: 50000 INTERNATIONAL UNIT, 1/WEEK
     Route: 048
  9. VITAMIN D NOS [Concomitant]
     Active Substance: VITAMIN D NOS
     Dosage: UNK UNK, QD
     Route: 048

REACTIONS (4)
  - Therapy interrupted [Unknown]
  - Weight decreased [Unknown]
  - Recalled product [Unknown]
  - Weight increased [Unknown]
